FAERS Safety Report 19746346 (Version 1)
Quarter: 2021Q3

REPORT INFORMATION
  Report Type: Other
  Country: DE (occurrence: DE)
  Receive Date: 20210826
  Receipt Date: 20210826
  Transmission Date: 20211014
  Serious: Yes (Other)
  Sender: FDA-Public Use
  Company Number: DE-DENTSPLY-2021SCDP000237

PATIENT
  Age: 21 Year
  Sex: Female
  Weight: 70 kg

DRUGS (2)
  1. MEPIVACAINE HCL [Suspect]
     Active Substance: MEPIVACAINE HYDROCHLORIDE
     Indication: LOCAL ANAESTHESIA
  2. MEPIVACAINE HCL [Suspect]
     Active Substance: MEPIVACAINE HYDROCHLORIDE
     Indication: SURGERY
     Dosage: UNK (0,1) SOLUTION FOR INJECTION
     Route: 058
     Dates: start: 20200731, end: 20200731

REACTIONS (2)
  - Hallucination, auditory [Recovered/Resolved]
  - Hypnagogic hallucination [Recovered/Resolved]

NARRATIVE: CASE EVENT DATE: 20200731
